FAERS Safety Report 5339858-0 (Version None)
Quarter: 2007Q2

REPORT INFORMATION
  Report Type: 
  Country: None (occurrence: None)
  Receive Date: 20070529
  Receipt Date: 20070507
  Transmission Date: 20071010
  Serious: Yes (Hospitalization)
  Sender: FDA-Public Use
  Company Number: MEDI-0005756

PATIENT
  Age: 10 Month

DRUGS (1)
  1. SYNAGIS [Suspect]
     Indication: ANTIVIRAL PROPHYLAXIS
     Dosage: 88 MG, INTRAMUSCULAR
     Route: 030
     Dates: start: 20051109, end: 20051207

REACTIONS (4)
  - ASPIRATION [None]
  - BRONCHIOLITIS [None]
  - LUNG DISORDER [None]
  - RESPIRATORY SYNCYTIAL VIRUS BRONCHIOLITIS [None]
